FAERS Safety Report 18385245 (Version 1)
Quarter: 2020Q4

REPORT INFORMATION
  Report Type: Spontaneous
  Country: HR (occurrence: HR)
  Receive Date: 20201015
  Receipt Date: 20201015
  Transmission Date: 20210114
  Serious: Yes (Other)
  Sender: FDA-Public Use
  Company Number: HR-SA-2020SA285048

PATIENT

DRUGS (4)
  1. TRAMAL [Suspect]
     Active Substance: TRAMADOL
     Dosage: 20 DF, QD
     Route: 048
     Dates: start: 20200909, end: 20200909
  2. MIRTAZAPINE. [Suspect]
     Active Substance: MIRTAZAPINE
     Dosage: 5 DF, QD
     Route: 048
     Dates: start: 20200909, end: 20200909
  3. ZOLPIDEM TARTRATE. [Suspect]
     Active Substance: ZOLPIDEM TARTRATE
     Dosage: 5 DF, QD
     Route: 048
     Dates: start: 20200909, end: 20200909
  4. DIAZEPAM. [Suspect]
     Active Substance: DIAZEPAM
     Dosage: 5 DF, QD
     Route: 048
     Dates: start: 20200909, end: 20200909

REACTIONS (4)
  - Disorientation [Unknown]
  - Intentional overdose [Unknown]
  - Suicide attempt [Unknown]
  - Ataxia [Unknown]

NARRATIVE: CASE EVENT DATE: 20200909
